FAERS Safety Report 12243504 (Version 3)
Quarter: 2016Q2

REPORT INFORMATION
  Report Type: Spontaneous
  Country: US (occurrence: US)
  Receive Date: 20160406
  Receipt Date: 20160425
  Transmission Date: 20160815
  Serious: Yes (Other)
  Sender: FDA-Public Use
  Company Number: US-VIIV HEALTHCARE LIMITED-US2016045709

PATIENT
  Age: 43 Year
  Sex: Male
  Weight: 82.99 kg

DRUGS (1)
  1. TRIUMEQ [Suspect]
     Active Substance: ABACAVIR SULFATE\DOLUTEGRAVIR SODIUM\LAMIVUDINE
     Indication: HIV INFECTION
     Dosage: 1 DF, 1D
     Route: 048
     Dates: start: 201512

REACTIONS (3)
  - Blood glucose abnormal [Unknown]
  - Diabetes mellitus [Unknown]
  - Glycosylated haemoglobin increased [Unknown]
